FAERS Safety Report 17571236 (Version 3)
Quarter: 2020Q3

REPORT INFORMATION
  Report Type: Spontaneous
  Country: CA (occurrence: CA)
  Receive Date: 20200323
  Receipt Date: 20200805
  Transmission Date: 20201102
  Serious: Yes (Other)
  Sender: FDA-Public Use
  Company Number: CA-PFIZER INC-2020120418

PATIENT
  Age: 57 Year
  Sex: Female

DRUGS (3)
  1. PLAQUENIL [Concomitant]
     Active Substance: HYDROXYCHLOROQUINE SULFATE
     Dosage: 200 MG BID (2X/DAY)
  2. SULFASALAZINE. [Suspect]
     Active Substance: SULFASALAZINE
     Dosage: 500 MG Q (EVERY) UNK
     Route: 048
     Dates: start: 20191106, end: 202002
  3. NAPROXEN. [Concomitant]
     Active Substance: NAPROXEN
     Dosage: PRN (AS NEEDED)
     Route: 065

REACTIONS (7)
  - Chronic hepatitis [Unknown]
  - Red cell distribution width increased [Unknown]
  - Gastric disorder [Unknown]
  - Red blood cell sedimentation rate increased [Unknown]
  - Synovitis [Unknown]
  - C-reactive protein increased [Unknown]
  - Joint swelling [Unknown]
